FAERS Safety Report 8555234-1 (Version None)
Quarter: 2012Q3

REPORT INFORMATION
  Report Type: 
  Country: None (occurrence: None)
  Receive Date: 20120731
  Receipt Date: 20120725
  Transmission Date: 20120928
  Serious: Yes (Other)
  Sender: FDA-Public Use
  Company Number: CHPA2012US015338

PATIENT
  Age: 38 Year
  Sex: Female

DRUGS (4)
  1. EXCEDRIN (MIGRAINE) [Suspect]
     Indication: MIGRAINE
     Dosage: 1 DF, PRN
     Route: 048
     Dates: start: 19980101
  2. EXCEDRIN TENSION HEADACHE CAPLETS [Suspect]
     Indication: HEADACHE
     Dosage: 2 DF, PRN
     Route: 048
  3. EXCEDRIN BACK \+ BODY CAPLETS [Suspect]
     Indication: PAIN
     Dosage: 2 DF, PRN
     Route: 048
  4. EXCEDRIN PM CAPLETS [Suspect]
     Indication: INSOMNIA
     Dosage: 2 DF, PRN
     Route: 048

REACTIONS (16)
  - DIZZINESS [None]
  - ARTHRITIS [None]
  - BACK INJURY [None]
  - PHOTOPHOBIA [None]
  - ANKLE FRACTURE [None]
  - JOINT INJURY [None]
  - ROAD TRAFFIC ACCIDENT [None]
  - SWELLING [None]
  - MUSCULOSKELETAL DISCOMFORT [None]
  - HEADACHE [None]
  - NAUSEA [None]
  - TREMOR [None]
  - MATERNAL EXPOSURE TIMING UNSPECIFIED [None]
  - ARTHRALGIA [None]
  - VOMITING [None]
  - WEIGHT INCREASED [None]
